FAERS Safety Report 9657079 (Version 2)
Quarter: 2014Q1

REPORT INFORMATION
  Report Type: Spontaneous
  Country: US (occurrence: US)
  Receive Date: 20131030
  Receipt Date: 20140131
  Transmission Date: 20141002
  Serious: No
  Sender: FDA-Public Use
  Company Number: US-009507513-1310USA014222

PATIENT
  Age: 61 Year
  Sex: Female
  Weight: 74.83 kg

DRUGS (12)
  1. CLARITIN-D-12 [Suspect]
     Indication: NASOPHARYNGITIS
     Dosage: 5 MG, Q12H
     Route: 048
     Dates: start: 201309
  2. CLARITIN-D-12 [Suspect]
     Indication: RHINORRHOEA
     Dosage: 5 MG, ONCE
     Route: 048
     Dates: start: 20131023
  3. CLARITIN-D-12 [Suspect]
     Indication: SNEEZING
  4. CLARITIN-D-12 [Suspect]
     Indication: SINUS CONGESTION
  5. DESIPRAMINE HYDROCHLORIDE [Concomitant]
     Indication: DEPRESSION
     Dosage: UNK, UNKNOWN
  6. WELLBUTRIN [Concomitant]
     Indication: DEPRESSION
     Dosage: UNK, UNKNOWN
  7. ALPRAZOLAM [Concomitant]
     Indication: ANXIETY
     Dosage: UNK, UNKNOWN
  8. VITAMIN B (UNSPECIFIED) [Concomitant]
     Indication: PRODUCT USED FOR UNKNOWN INDICATION
     Dosage: UNK, UNKNOWN
  9. VITAMIN D (UNSPECIFIED) [Concomitant]
     Indication: PRODUCT USED FOR UNKNOWN INDICATION
     Dosage: UNK, UNKNOWN
  10. CITRACAL [Concomitant]
     Indication: PRODUCT USED FOR UNKNOWN INDICATION
     Dosage: UNK, UNKNOWN
  11. GARLIC [Concomitant]
     Indication: PRODUCT USED FOR UNKNOWN INDICATION
     Dosage: UNK, UNKNOWN
  12. OMEGA-3 MARINE TRIGLYCERIDES [Concomitant]
     Indication: PRODUCT USED FOR UNKNOWN INDICATION
     Dosage: UNK, UNKNOWN

REACTIONS (4)
  - Dysphagia [Recovered/Resolved]
  - Dry throat [Recovered/Resolved]
  - Drug ineffective [Unknown]
  - Product packaging issue [Unknown]
